FAERS Safety Report 7825922-0 (Version None)
Quarter: 2011Q4

REPORT INFORMATION
  Report Type: 
  Country: None (occurrence: None)
  Receive Date: 20111019
  Receipt Date: 20111017
  Transmission Date: 20120403
  Serious: Yes (Death)
  Sender: FDA-Public Use
  Company Number: IT-ROCHE-759566

PATIENT
  Sex: Male
  Weight: 59 kg

DRUGS (8)
  1. RIBAVIRIN [Suspect]
     Indication: HEPATITIS C
     Route: 048
     Dates: start: 20101125, end: 20110408
  2. PEGINTERFERON ALFA-2A [Suspect]
     Indication: HEPATITIS C
     Route: 058
     Dates: start: 20101230, end: 20110408
  3. ATENOLOL [Concomitant]
     Indication: HYPERTENSION
     Dosage: FREQUENCY: 0.5/DAY
     Route: 048
  4. NEXIUM [Concomitant]
     Indication: GASTROINTESTINAL DISORDER
     Route: 048
  5. LANSOPRAZOLE [Concomitant]
     Indication: GASTROINTESTINAL DISORDER
     Route: 048
     Dates: start: 20110211, end: 20110426
  6. INDERAL [Concomitant]
     Route: 048
     Dates: start: 20110221, end: 20110426
  7. PLAUNAZIDE [Concomitant]
     Indication: HYPERTENSION
     Dosage: DOSE: 20/25 MG
     Route: 048
  8. GRANULOKINE [Concomitant]
     Indication: LEUKOPENIA
     Dosage: DOSE: 30000000 U.
     Route: 058
     Dates: start: 20101215, end: 20110319

REACTIONS (2)
  - PORTAL VEIN THROMBOSIS [None]
  - GASTROINTESTINAL HAEMORRHAGE [None]
